FAERS Safety Report 13368207 (Version 1)
Quarter: 2017Q1

REPORT INFORMATION
  Report Type: Spontaneous
  Country: US (occurrence: US)
  Receive Date: 20170324
  Receipt Date: 20170324
  Transmission Date: 20170429
  Serious: Yes (Other)
  Sender: FDA-Public Use
  Company Number: US-JNJFOC-20170316974

PATIENT
  Age: 84 Year
  Sex: Female
  Weight: 53 kg

DRUGS (13)
  1. DARZALEX [Suspect]
     Active Substance: DARATUMUMAB
     Indication: PLASMA CELL MYELOMA
     Route: 042
     Dates: start: 20161214
  2. TURMERIC [Concomitant]
     Active Substance: TURMERIC
  3. ZOFRAN [Concomitant]
     Active Substance: ONDANSETRON HYDROCHLORIDE
  4. LEVOTHYROXINE. [Concomitant]
     Active Substance: LEVOTHYROXINE
  5. DECADRON [Concomitant]
     Active Substance: DEXAMETHASONE
  6. FISH OIL [Concomitant]
     Active Substance: FISH OIL
  7. VITAMIN B12 [Concomitant]
     Active Substance: CYANOCOBALAMIN
  8. TUMS [Concomitant]
     Active Substance: CALCIUM CARBONATE
  9. FOLIC ACID. [Concomitant]
     Active Substance: FOLIC ACID
  10. DOCUSATE [Concomitant]
     Active Substance: DOCUSATE
  11. BIOTIN [Concomitant]
     Active Substance: BIOTIN
  12. COENZYME Q10 [Concomitant]
     Active Substance: UBIDECARENONE
  13. ACYCLOVIR. [Concomitant]
     Active Substance: ACYCLOVIR

REACTIONS (1)
  - Amnesia [Not Recovered/Not Resolved]

NARRATIVE: CASE EVENT DATE: 20161221
